FAERS Safety Report 9397373 (Version 1)
Quarter: 2013Q3

REPORT INFORMATION
  Report Type: Report from Study
  Country: NL (occurrence: NL)
  Receive Date: 20130712
  Receipt Date: 20130712
  Transmission Date: 20140515
  Serious: Yes (Other)
  Sender: FDA-Public Use
  Company Number: PHHY2013NL073922

PATIENT
  Sex: Male

DRUGS (4)
  1. ZOMETA [Suspect]
     Indication: PROSTATE CANCER METASTATIC
     Dosage: 4 MG/100 ML ONCE EVERY 4 WEEKS
     Route: 042
  2. ZOMETA [Suspect]
     Dosage: 4 MG/100 ML ONCE EVERY 4 WEEKS
     Dates: start: 20101220
  3. ZOMETA [Suspect]
     Dosage: 4 MG/100 ML ONCE EVERY 4 WEEKS
     Dates: start: 20130517
  4. ZOMETA [Suspect]
     Dosage: 4 MG/100 ML ONCE EVERY 4 WEEKS
     Dates: start: 20130617, end: 20130617

REACTIONS (1)
  - Terminal state [Not Recovered/Not Resolved]
